FAERS Safety Report 20518192 (Version 1)
Quarter: 2022Q1

REPORT INFORMATION
  Report Type: Spontaneous
  Country: US (occurrence: US)
  Receive Date: 20220225
  Receipt Date: 20220225
  Transmission Date: 20220423
  Serious: No
  Sender: FDA-Public Use
  Company Number: US-JNJFOC-20220221985

PATIENT
  Age: 24 Year
  Sex: Male
  Weight: 81.65 kg

DRUGS (6)
  1. ZYRTEC [Suspect]
     Active Substance: CETIRIZINE HYDROCHLORIDE
     Indication: Lip pruritus
     Route: 065
     Dates: start: 2022
  2. ZYRTEC [Suspect]
     Active Substance: CETIRIZINE HYDROCHLORIDE
     Indication: Oral pruritus
  3. BENADRYL [Suspect]
     Active Substance: DIPHENHYDRAMINE HYDROCHLORIDE
     Indication: Lip pruritus
     Route: 065
     Dates: start: 2022
  4. BENADRYL [Suspect]
     Active Substance: DIPHENHYDRAMINE HYDROCHLORIDE
     Indication: Oral pruritus
  5. CLARITIN [Concomitant]
     Active Substance: LORATADINE
     Indication: Pruritus
     Route: 065
     Dates: start: 2022
  6. DEPO-MEDROL [Concomitant]
     Active Substance: METHYLPREDNISOLONE ACETATE
     Indication: Nerve block
     Route: 065
     Dates: start: 202110

REACTIONS (1)
  - Product use in unapproved indication [Unknown]
